FAERS Safety Report 22249297 (Version 2)
Quarter: 2025Q1

REPORT INFORMATION
  Report Type: Spontaneous
  Country: US (occurrence: US)
  Receive Date: 20230425
  Receipt Date: 20250128
  Transmission Date: 20250408
  Serious: No
  Sender: SANOFI AVENTIS
  Company Number: US-SA-SAC20230420001778

PATIENT
  Age: 58 Year
  Sex: Female
  Weight: 100 kg

DRUGS (6)
  1. DUPIXENT [Suspect]
     Active Substance: DUPILUMAB
     Indication: Asthma
     Dosage: 300 MG, QOW
     Route: 058
     Dates: start: 20230407
  2. FLUCONAZOLE [Concomitant]
     Active Substance: FLUCONAZOLE
  3. PREDNISONE [Concomitant]
     Active Substance: PREDNISONE
  4. TORSEMIDE [Concomitant]
     Active Substance: TORSEMIDE
  5. XARELTO [Concomitant]
     Active Substance: RIVAROXABAN
  6. CLARITIN [Concomitant]
     Active Substance: LORATADINE

REACTIONS (3)
  - Fibromyalgia [Unknown]
  - Impaired quality of life [Unknown]
  - Injection site reaction [Unknown]

NARRATIVE: CASE EVENT DATE: 20230401
